FAERS Safety Report 20744035 (Version 3)
Quarter: 2022Q3

REPORT INFORMATION
  Report Type: Report from Study
  Country: US (occurrence: US)
  Receive Date: 20220425
  Receipt Date: 20220930
  Transmission Date: 20221027
  Serious: Yes (Other)
  Sender: FDA-Public Use
  Company Number: US-BRISTOL-MYERS SQUIBB COMPANY-2022-022201

PATIENT
  Age: 83 Year
  Sex: Female
  Weight: 68 kg

DRUGS (26)
  1. REVLIMID [Suspect]
     Active Substance: LENALIDOMIDE
     Indication: Plasma cell myeloma
     Dosage: EXP: 31-AUG-2024?DAILY FOR 21 DAYS OF 28 DAYS CYCLE
     Route: 048
     Dates: start: 20210518
  2. LATANOPROST [Concomitant]
     Active Substance: LATANOPROST
     Indication: Product used for unknown indication
     Route: 065
  3. FISH OIL [Concomitant]
     Active Substance: FISH OIL
     Indication: Product used for unknown indication
     Route: 065
  4. Centrum silver women [Concomitant]
     Indication: Product used for unknown indication
     Route: 065
  5. ZINC [Concomitant]
     Active Substance: ZINC
     Indication: Product used for unknown indication
     Route: 065
  6. VITAMIN B COMPLEX [Concomitant]
     Active Substance: CYANOCOBALAMIN\DEXPANTHENOL\NIACINAMIDE\PYRIDOXINE HYDROCHLORIDE\RIBOFLAVIN 5^-PHOSPHATE SODIUM\THIA
     Indication: Product used for unknown indication
     Route: 065
  7. COCONUT OIL [Concomitant]
     Active Substance: COCONUT OIL
     Indication: Product used for unknown indication
     Route: 065
  8. GARLIC [Concomitant]
     Active Substance: GARLIC
     Indication: Product used for unknown indication
     Route: 065
  9. COLACE [Concomitant]
     Active Substance: DOCUSATE SODIUM
     Indication: Product used for unknown indication
     Route: 065
  10. ELIQUIS [Concomitant]
     Active Substance: APIXABAN
     Indication: Product used for unknown indication
     Route: 065
  11. FLAXSEED [Concomitant]
     Active Substance: FLAX SEED
     Indication: Product used for unknown indication
     Route: 065
  12. Macular health [Concomitant]
     Indication: Product used for unknown indication
     Route: 065
  13. VITAMIN B12 [Concomitant]
     Active Substance: CYANOCOBALAMIN
     Indication: Product used for unknown indication
     Route: 065
  14. METRONIDAZOLE [Concomitant]
     Active Substance: METRONIDAZOLE
     Indication: Product used for unknown indication
     Route: 065
  15. ONDANSETRON [Concomitant]
     Active Substance: ONDANSETRON
     Indication: Product used for unknown indication
     Route: 065
  16. DEXAMETHASONE [Concomitant]
     Active Substance: DEXAMETHASONE
     Indication: Product used for unknown indication
     Route: 065
  17. LEXAPRO [Concomitant]
     Active Substance: ESCITALOPRAM OXALATE
     Indication: Product used for unknown indication
     Route: 065
  18. FLUCONAZOLE [Concomitant]
     Active Substance: FLUCONAZOLE
     Indication: Product used for unknown indication
     Route: 065
  19. ESCITALOPRAM [Concomitant]
     Active Substance: ESCITALOPRAM OXALATE
     Indication: Product used for unknown indication
     Route: 065
  20. OMEPRAZOLE [Concomitant]
     Active Substance: OMEPRAZOLE
     Indication: Product used for unknown indication
     Route: 065
  21. ACYCLOVIR [Concomitant]
     Active Substance: ACYCLOVIR
     Indication: Product used for unknown indication
     Route: 065
  22. CARVEDILOL [Concomitant]
     Active Substance: CARVEDILOL
     Indication: Product used for unknown indication
     Route: 065
  23. DIGOXIN [Concomitant]
     Active Substance: DIGOXIN
     Indication: Product used for unknown indication
     Route: 065
  24. LEVOTHYROXINE [Concomitant]
     Active Substance: LEVOTHYROXINE
     Indication: Product used for unknown indication
     Route: 065
  25. SIMVASTATIN [Concomitant]
     Active Substance: SIMVASTATIN
     Indication: Product used for unknown indication
     Route: 065
  26. SPIRONOLACTONE [Concomitant]
     Active Substance: SPIRONOLACTONE
     Indication: Product used for unknown indication
     Route: 065

REACTIONS (11)
  - Nausea [Recovering/Resolving]
  - Pharyngitis streptococcal [Unknown]
  - Diarrhoea [Unknown]
  - Food allergy [Unknown]
  - Malaise [Unknown]
  - Cough [Unknown]
  - Pharyngeal swelling [Unknown]
  - Urine odour abnormal [Unknown]
  - Dysuria [Unknown]
  - Weight decreased [Unknown]
  - Appetite disorder [Unknown]

NARRATIVE: CASE EVENT DATE: 20220701
